FAERS Safety Report 13928377 (Version 1)
Quarter: 2017Q3

REPORT INFORMATION
  Report Type: Spontaneous
  Country: US (occurrence: None)
  Receive Date: 20170901
  Receipt Date: 20170901
  Transmission Date: 20171127
  Serious: Yes (Life-Threatening, Disabling, Other)
  Sender: FDA-Public Use
  Company Number: None

PATIENT
  Age: 50 Year
  Sex: Male
  Weight: 99.79 kg

DRUGS (11)
  1. RANITIDINE. [Concomitant]
     Active Substance: RANITIDINE
  2. TOLNAFTATE. [Concomitant]
     Active Substance: TOLNAFTATE
  3. NAPROXEN. [Concomitant]
     Active Substance: NAPROXEN
  4. PRILOSEC [Suspect]
     Active Substance: OMEPRAZOLE MAGNESIUM
     Indication: DYSPEPSIA
     Dosage: 20 MG, 30 PILLS
     Dates: start: 2008, end: 2017
  5. PIROXICAM. [Concomitant]
     Active Substance: PIROXICAM
  6. LORATADINE/PSEUDOEPHED ER [Concomitant]
  7. METHOCARBAMOL. [Concomitant]
     Active Substance: METHOCARBAMOL
  8. NORTRIPTYLINE [Concomitant]
     Active Substance: NORTRIPTYLINE
  9. OXYCODONE/ACETAMINOPHEN [Concomitant]
     Active Substance: ACETAMINOPHEN\OXYCODONE HYDROCHLORIDE
  10. PERPHENAZINE. [Concomitant]
     Active Substance: PERPHENAZINE
  11. NEOMYCIN/POLY/HC [Concomitant]

REACTIONS (1)
  - Renal disorder [None]

NARRATIVE: CASE EVENT DATE: 20080919
